FAERS Safety Report 19186971 (Version 2)
Quarter: 2021Q2

REPORT INFORMATION
  Report Type: Spontaneous
  Country: ES (occurrence: ES)
  Receive Date: 20210428
  Receipt Date: 20210616
  Transmission Date: 20210717
  Serious: Yes (Hospitalization)
  Sender: FDA-Public Use
  Company Number: ES-SUN PHARMACEUTICAL INDUSTRIES LTD-2021RR-293566

PATIENT
  Age: 75 Year
  Sex: Male

DRUGS (40)
  1. ALLOPURINOL. [Suspect]
     Active Substance: ALLOPURINOL
     Indication: HYPERURICAEMIA
     Dosage: 300 MILLIGRAM, DAILY, 300 MG, PER DAY
     Route: 065
  2. BISOPROLOL FUMARATE. [Suspect]
     Active Substance: BISOPROLOL FUMARATE
     Indication: HYPERTENSION
     Dosage: 2.5 MILLIGRAM
     Route: 065
  3. CARVEDILOL. [Suspect]
     Active Substance: CARVEDILOL
     Indication: PRODUCT USED FOR UNKNOWN INDICATION
     Dosage: 3.13 MILLIGRAM
     Route: 065
  4. LEVOTHYROXINE. [Suspect]
     Active Substance: LEVOTHYROXINE
     Dosage: 75 MICROGRAM
     Route: 065
  5. TIOTROPIUM [Suspect]
     Active Substance: TIOTROPIUM
     Dosage: 18 MILLIGRAM
     Route: 065
  6. EPLERENONE. [Suspect]
     Active Substance: EPLERENONE
     Route: 065
  7. TAMSULOSIN HYDROCHLORIDE. [Suspect]
     Active Substance: TAMSULOSIN HYDROCHLORIDE
     Indication: PRODUCT USED FOR UNKNOWN INDICATION
     Dosage: 0.4 MILLIGRAM, DAILY, 0.4 MG, PER DAY
     Route: 065
  8. IPRATROPIUM [Concomitant]
     Active Substance: IPRATROPIUM
     Indication: PRODUCT USED FOR UNKNOWN INDICATION
     Dosage: 500 MCG/8H
     Route: 065
  9. ENALAPRIL [Suspect]
     Active Substance: ENALAPRIL
     Indication: CARDIAC FAILURE CONGESTIVE
     Dosage: 2.5 MILLIGRAM, DAILY, 2.5 MG, PER DAY
     Route: 065
  10. MORPHINE [Suspect]
     Active Substance: MORPHINE
     Indication: DYSPNOEA
     Dosage: ()
     Route: 065
  11. SALMETEROL / FLUTICASONE [Suspect]
     Active Substance: FLUTICASONE PROPIONATE\SALMETEROL XINAFOATE
     Indication: DYSPNOEA
     Dosage: 2 DOSAGE FORM, DAILY, 25MCG/125MCG, 2X PER DAY
     Route: 065
  12. LEVOSIMENDAN [Suspect]
     Active Substance: LEVOSIMENDAN
     Dosage: ()
     Route: 065
  13. DIGOXIN. [Suspect]
     Active Substance: DIGOXIN
     Dosage: 0.25 MILLIGRAM, DAILY, 0.25 MG
     Route: 065
  14. EPLERENONE. [Suspect]
     Active Substance: EPLERENONE
     Indication: PRODUCT USED FOR UNKNOWN INDICATION
     Dosage: 50 MILLIGRAM, DAILY
     Route: 065
  15. MAGNESIUM HYDROXIDE. [Concomitant]
     Active Substance: MAGNESIUM HYDROXIDE
     Indication: PRODUCT USED FOR UNKNOWN INDICATION
     Dosage: 2.4 GRAM, DAILY
     Route: 065
  16. ATORVASTATIN [Suspect]
     Active Substance: ATORVASTATIN
     Indication: DYSLIPIDAEMIA
     Dosage: 20 MILLIGRAM, DAILY, 20 MG, PER DAY
     Route: 065
  17. ACENOCOUMAROL [Suspect]
     Active Substance: ACENOCOUMAROL
     Indication: ARRHYTHMIA
     Dosage: ()
     Route: 065
  18. SALMETEROL / FLUTICASONE [Suspect]
     Active Substance: FLUTICASONE PROPIONATE\SALMETEROL XINAFOATE
     Indication: DYSPNOEA
     Dosage: 2 DOSAGE FORM
     Route: 065
  19. SALMETEROL [Suspect]
     Active Substance: SALMETEROL
     Dosage: 25 MICROGRAM
     Route: 065
  20. DIGOXIN. [Suspect]
     Active Substance: DIGOXIN
     Indication: CARDIAC FAILURE CONGESTIVE
     Dosage: 0.13 MILLIGRAM, DAILY
     Route: 065
  21. SALMETEROL [Suspect]
     Active Substance: SALMETEROL
     Indication: CHRONIC OBSTRUCTIVE PULMONARY DISEASE
     Dosage: 25 MICROGRAM, BID
     Route: 065
  22. FLUTICASONE. [Suspect]
     Active Substance: FLUTICASONE
     Indication: CHRONIC OBSTRUCTIVE PULMONARY DISEASE
     Dosage: 125 MICROGRAM, BID
     Route: 065
  23. FUROSEMIDE. [Suspect]
     Active Substance: FUROSEMIDE
     Indication: PRODUCT USED FOR UNKNOWN INDICATION
     Dosage: 120 MILLIGRAM, DAILY, 120 MG, PER DAY
     Route: 065
  24. ACENOCOUMAROL [Suspect]
     Active Substance: ACENOCOUMAROL
     Indication: ARRHYTHMIA
     Dosage: ()
     Route: 065
  25. BISOPROLOL FUMARATE. [Suspect]
     Active Substance: BISOPROLOL FUMARATE
     Dosage: 1.25 MILLIGRAM, BID
     Route: 065
  26. SALBUTAMOL [Suspect]
     Active Substance: ALBUTEROL
     Indication: DYSPNOEA
     Dosage: ()
     Route: 065
  27. RISPERIDONE. [Concomitant]
     Active Substance: RISPERIDONE
     Indication: PRODUCT USED FOR UNKNOWN INDICATION
     Dosage: 0.25 MILLIGRAM, BID
     Route: 065
  28. FUROSEMIDE. [Suspect]
     Active Substance: FUROSEMIDE
     Dosage: 250 MILLIGRAM, 250 UNK
     Route: 042
  29. FUROSEMIDE. [Suspect]
     Active Substance: FUROSEMIDE
     Dosage: 250 MILLIGRAM
     Route: 042
  30. CARVEDILOL. [Suspect]
     Active Substance: CARVEDILOL
     Indication: PRODUCT USED FOR UNKNOWN INDICATION
     Dosage: 3.13 MILLIGRAM, DAILY, 3.13 MG/DAY DEPENDING ON BLOOD PRESSURE
     Route: 065
  31. TIOTROPIUM [Suspect]
     Active Substance: TIOTROPIUM
     Indication: CHRONIC OBSTRUCTIVE PULMONARY DISEASE
     Dosage: 18 MILLIGRAM, DAILY, 18 MG, PER DAY
     Route: 065
  32. EPLERENONE. [Suspect]
     Active Substance: EPLERENONE
     Route: 065
  33. BISOPROLOL FUMARATE. [Suspect]
     Active Substance: BISOPROLOL FUMARATE
     Indication: CARDIAC FAILURE CONGESTIVE
     Dosage: 2.5 MILLIGRAM, DAILY, 1.25 MG, 2X PER DAY
     Route: 065
  34. LEVOSIMENDAN [Suspect]
     Active Substance: LEVOSIMENDAN
     Indication: CARDIAC FAILURE CONGESTIVE
     Dosage: ()
     Route: 065
  35. SALBUTAMOL [Suspect]
     Active Substance: ALBUTEROL
     Indication: DYSPNOEA
     Dosage: ()
     Route: 065
  36. FLUTICASONE. [Suspect]
     Active Substance: FLUTICASONE
     Dosage: 125 MICROGRAM
     Route: 065
  37. AMIODARONE HYDROCHLORIDE. [Suspect]
     Active Substance: AMIODARONE HYDROCHLORIDE
     Indication: VENTRICULAR TACHYCARDIA
     Dosage: 200 MILLIGRAM, DAILY
     Route: 065
  38. LEVOTHYROXINE. [Suspect]
     Active Substance: LEVOTHYROXINE
     Indication: HYPOTHYROIDISM
     Dosage: 75 MICROGRAM, DAILY, 75 UG, PER DAY
     Route: 065
  39. DIGOXIN. [Suspect]
     Active Substance: DIGOXIN
     Route: 065
  40. OMEPRAZOLE. [Concomitant]
     Active Substance: OMEPRAZOLE
     Indication: PRODUCT USED FOR UNKNOWN INDICATION
     Dosage: UNK
     Route: 065

REACTIONS (5)
  - Hypothyroidism [Unknown]
  - Drug ineffective [Unknown]
  - Hypotension [Unknown]
  - Constipation [Recovering/Resolving]
  - Off label use [Unknown]
